FAERS Safety Report 21672411 (Version 2)
Quarter: 2022Q4

REPORT INFORMATION
  Report Type: Spontaneous
  Country: IT (occurrence: IT)
  Receive Date: 20221202
  Receipt Date: 20221210
  Transmission Date: 20230113
  Serious: Yes (Hospitalization)
  Sender: FDA-Public Use
  Company Number: None

PATIENT
  Age: 90 Year
  Sex: Female
  Weight: 60 kg

DRUGS (3)
  1. QUETIAPINE FUMARATE [Suspect]
     Active Substance: QUETIAPINE FUMARATE
     Indication: Product used for unknown indication
     Dosage: 300 MG, ONCE/SINGLE (TOTAL) (MONOSOMMINISTRAZIONE QUETIAPINA 1 CP DA 300 MG)
     Route: 048
     Dates: start: 20221120, end: 20221120
  2. VALPROATE SODIUM [Suspect]
     Active Substance: VALPROATE SODIUM
     Indication: Product used for unknown indication
     Dosage: 500 MG, ONCE/SINGLE (TOTAL) (MONOSOMMINISTRAZIONE 1 CP DEPAKIN 500 MG PER ERRORE TERAPEUTICO)
     Route: 048
     Dates: start: 20221120, end: 20221120
  3. CHLORPROMAZINE [Suspect]
     Active Substance: CHLORPROMAZINE
     Indication: Product used for unknown indication
     Dosage: 25 MG, ONCE/SINGLE (TOTAL) (MOMOSOMMINSTRAZIONE DI 1 CP 25 MG ERRORE TERAPEUTICO)
     Route: 048
     Dates: start: 20221120, end: 20221120

REACTIONS (2)
  - Sopor [Recovering/Resolving]
  - Medication error [Recovering/Resolving]

NARRATIVE: CASE EVENT DATE: 20221120
